FAERS Safety Report 4643868-6 (Version None)
Quarter: 2005Q2

REPORT INFORMATION
  Report Type: 
  Country: None (occurrence: None)
  Receive Date: 20050425
  Receipt Date: 20041209
  Transmission Date: 20051028
  Serious: Yes (Other)
  Sender: FDA-Public Use
  Company Number: US-GLAXOSMITHKLINE-A0536714A

PATIENT
  Age: 54 Year
  Sex: Female
  Weight: 86 kg

DRUGS (12)
  1. NICORETTE (MINT) [Suspect]
     Dates: start: 20011001
  2. XANAX [Concomitant]
  3. PREDNISONE [Concomitant]
  4. ACTONEL [Concomitant]
  5. MOBIC [Concomitant]
  6. PAROXETINE HCL [Concomitant]
  7. ALPRAZOLAM [Concomitant]
  8. CALTRATE PLUS D [Concomitant]
  9. MAGNESIUM [Concomitant]
  10. MULTIVITAMIN [Concomitant]
  11. LORA TAB [Concomitant]
  12. VITAMIN E [Concomitant]

REACTIONS (8)
  - ANKLE FRACTURE [None]
  - DRUG ABUSER [None]
  - LUNG CARCINOMA CELL TYPE UNSPECIFIED RECURRENT [None]
  - MUSCLE SPASMS [None]
  - NICOTINE DEPENDENCE [None]
  - OSTEOPOROSIS [None]
  - RED BLOOD CELL COUNT DECREASED [None]
  - WEIGHT INCREASED [None]
